FAERS Safety Report 20622710 (Version 1)
Quarter: 2022Q1

REPORT INFORMATION
  Report Type: Spontaneous
  Country: US (occurrence: None)
  Receive Date: 20220322
  Receipt Date: 20220322
  Transmission Date: 20220423
  Serious: Yes (Other)
  Sender: FDA-Public Use
  Company Number: None

PATIENT
  Age: 29 Year
  Sex: Female
  Weight: 84.6 kg

DRUGS (1)
  1. DULOXETINE HYDROCHLORIDE [Suspect]
     Active Substance: DULOXETINE HYDROCHLORIDE
     Indication: Neuralgia
     Dosage: OTHER QUANTITY : 1 CAPSULE(S);?FREQUENCY : DAILY;?
     Route: 048
     Dates: start: 20220314, end: 20220320

REACTIONS (12)
  - Dyspnoea [None]
  - Nausea [None]
  - Pyrexia [None]
  - Dehydration [None]
  - Feeling jittery [None]
  - Loss of personal independence in daily activities [None]
  - Feeding disorder [None]
  - Nausea [None]
  - Abdominal pain upper [None]
  - Sensation of foreign body [None]
  - Loss of employment [None]
  - Agitation [None]

NARRATIVE: CASE EVENT DATE: 20220314
